FAERS Safety Report 6553640-8 (Version None)
Quarter: 2010Q1

REPORT INFORMATION
  Report Type: 
  Country: None (occurrence: None)
  Receive Date: 20100125
  Receipt Date: 20100125
  Transmission Date: 20100710
  Serious: Yes (Other)
  Sender: FDA-Public Use
  Company Number: None

PATIENT
  Age: 73 Year
  Sex: Male

DRUGS (1)
  1. ACYCLOVIR [Suspect]
     Indication: HERPES ZOSTER
     Dosage: 800 MG EA. 1-TAB @3X DAILY ORAL
     Route: 048
     Dates: start: 20091203, end: 20091214

REACTIONS (6)
  - CHEILITIS [None]
  - DRY THROAT [None]
  - ORAL DISORDER [None]
  - ORAL PAIN [None]
  - PRODUCT FORMULATION ISSUE [None]
  - PRODUCT QUALITY ISSUE [None]
